FAERS Safety Report 8070623-X (Version None)
Quarter: 2012Q1

REPORT INFORMATION
  Report Type: 
  Country: None (occurrence: None)
  Receive Date: 20120125
  Receipt Date: 20120116
  Transmission Date: 20120608
  Serious: Yes (Other)
  Sender: FDA-Public Use
  Company Number: PHEH2012US001382

PATIENT
  Sex: Male

DRUGS (4)
  1. METHYLPHENIDATE [Suspect]
  2. CLONAZEPAM [Concomitant]
     Indication: TREMOR
     Dosage: 2 MG, TID
  3. METHADONE HCL [Concomitant]
     Dosage: 10 MG, QID
  4. RITALIN LA [Suspect]
     Dosage: 40 MG, UNK

REACTIONS (8)
  - WITHDRAWAL SYNDROME [None]
  - STAPHYLOCOCCAL INFECTION [None]
  - AGGRESSION [None]
  - ACCIDENT [None]
  - INSOMNIA [None]
  - MEMORY IMPAIRMENT [None]
  - LOSS OF CONSCIOUSNESS [None]
  - ABNORMAL BEHAVIOUR [None]
